FAERS Safety Report 15719707 (Version 3)
Quarter: 2019Q1

REPORT INFORMATION
  Report Type: Spontaneous
  Country: US (occurrence: US)
  Receive Date: 20181213
  Receipt Date: 20190201
  Transmission Date: 20190417
  Serious: Yes (Hospitalization, Other)
  Sender: FDA-Public Use
  Company Number: US-GILEAD-2018-0379545

PATIENT
  Age: 46 Year
  Sex: Male
  Weight: 96.2 kg

DRUGS (1)
  1. YESCARTA [Suspect]
     Active Substance: AXICABTAGENE CILOLEUCEL
     Indication: DIFFUSE LARGE B-CELL LYMPHOMA
     Dosage: 68 ML
     Route: 042
     Dates: start: 20180821, end: 20180821

REACTIONS (14)
  - CAR T-cell-related encephalopathy syndrome [Recovered/Resolved]
  - Pressure of speech [Recovered/Resolved]
  - Pyrexia [Recovered/Resolved]
  - Pressure of speech [Recovered/Resolved]
  - Feeling jittery [Recovered/Resolved]
  - Tremor [Recovered/Resolved]
  - Cytokine release syndrome [Recovered/Resolved]
  - Dysgraphia [Recovered/Resolved]
  - Paraesthesia [Recovered/Resolved]
  - Tachyphrenia [Recovered/Resolved]
  - Hypoaesthesia [Recovered/Resolved]
  - Tachycardia [Recovered/Resolved]
  - CAR T-cell-related encephalopathy syndrome [Recovered/Resolved]
  - Aphasia [Recovered/Resolved]

NARRATIVE: CASE EVENT DATE: 20180822
